FAERS Safety Report 5242786-2 (Version None)
Quarter: 2007Q1

REPORT INFORMATION
  Report Type: 
  Country: None (occurrence: None)
  Receive Date: 20070214
  Receipt Date: 20070129
  Transmission Date: 20070707
  Serious: Yes (Other)
  Sender: FDA-Public Use
  Company Number: 8021732

PATIENT
  Age: 18 Year
  Sex: Male

DRUGS (1)
  1. KEPPRA [Suspect]
     Dosage: 3000 MG
     Dates: start: 20061120

REACTIONS (3)
  - BLINDNESS UNILATERAL [None]
  - HALLUCINATION [None]
  - PANIC ATTACK [None]
